FAERS Safety Report 15832757 (Version 2)
Quarter: 2019Q1

REPORT INFORMATION
  Report Type: Spontaneous
  Country: JP (occurrence: JP)
  Receive Date: 20190116
  Receipt Date: 20190123
  Transmission Date: 20190417
  Serious: Yes (Hospitalization, Other)
  Sender: FDA-Public Use
  Company Number: JP-VIIV HEALTHCARE LIMITED-JP2019JPN004458

PATIENT
  Age: 5 Decade
  Sex: Male

DRUGS (2)
  1. TIVICAY [Suspect]
     Active Substance: DOLUTEGRAVIR SODIUM
     Indication: HIV INFECTION
     Dosage: UNK
     Route: 048
     Dates: start: 201712
  2. DESCOVY [Concomitant]
     Active Substance: EMTRICITABINE\TENOFOVIR ALAFENAMIDE FUMARATE
     Indication: HIV INFECTION
     Dosage: UNK
     Dates: start: 201712

REACTIONS (10)
  - Dysphonia [Unknown]
  - Pneumonia aspiration [Unknown]
  - Cranial nerve palsies multiple [Recovered/Resolved]
  - Rash generalised [Unknown]
  - Facial paralysis [Recovering/Resolving]
  - Pyrexia [Unknown]
  - Varicella zoster virus infection [Unknown]
  - Immune reconstitution inflammatory syndrome [Recovering/Resolving]
  - Choking [Unknown]
  - Dysphagia [Recovering/Resolving]

NARRATIVE: CASE EVENT DATE: 201803
